FAERS Safety Report 8240416-9 (Version None)
Quarter: 2012Q1

REPORT INFORMATION
  Report Type: 
  Country: None (occurrence: None)
  Receive Date: 20120328
  Receipt Date: 20120316
  Transmission Date: 20120608
  Serious: Yes (Death, Other)
  Sender: FDA-Public Use
  Company Number: JP-PFIZER INC-2012060836

PATIENT
  Age: 66 Year
  Sex: Male

DRUGS (6)
  1. AMIODARONE HYDROCHLORIDE [Suspect]
     Dosage: 100 MG, 2X/DAY
     Route: 042
     Dates: start: 20120206, end: 20120215
  2. AMIODARONE HYDROCHLORIDE [Suspect]
     Dosage: 750 MG, DAILY
     Route: 042
     Dates: start: 20120130, end: 20120205
  3. AMIODARONE HYDROCHLORIDE [Suspect]
     Indication: ATRIAL FIBRILLATION
     Dosage: 200 MG, DAILY
     Route: 048
     Dates: start: 20120201, end: 20120229
  4. AMIODARONE HYDROCHLORIDE [Suspect]
     Dosage: 125 MG, SINGLE
     Route: 042
     Dates: start: 20120130, end: 20120130
  5. HANP [Concomitant]
  6. LASIX [Concomitant]
     Indication: POLYURIA

REACTIONS (7)
  - PULMONARY ALVEOLAR HAEMORRHAGE [None]
  - INTERSTITIAL LUNG DISEASE [None]
  - RESPIRATORY FAILURE [None]
  - HYPOALBUMINAEMIA [None]
  - PLATELET COUNT DECREASED [None]
  - ENDOCARDITIS [None]
  - ANAEMIA [None]
